FAERS Safety Report 6844420-4 (Version None)
Quarter: 2010Q3

REPORT INFORMATION
  Report Type: 
  Country: None (occurrence: None)
  Receive Date: 20100715
  Receipt Date: 20100707
  Transmission Date: 20110219
  Serious: Yes (Hospitalization, Other)
  Sender: FDA-Public Use
  Company Number: IN-BAXTER-2010BH018519

PATIENT

DRUGS (2)
  1. DEXTROSE 5% [Suspect]
     Indication: SURGERY
     Route: 042
     Dates: start: 20100707, end: 20100707
  2. DEXTROSE 5% AND SODIUM CHLORIDE 0.9% IN PLASTIC CONTAINER [Suspect]
     Indication: SURGERY
     Route: 042
     Dates: start: 20100707, end: 20100707

REACTIONS (1)
  - CHILLS [None]
